FAERS Safety Report 20925410 (Version 1)
Quarter: 2022Q2

REPORT INFORMATION
  Report Type: Report from Study
  Country: DK (occurrence: DK)
  Receive Date: 20220607
  Receipt Date: 20220607
  Transmission Date: 20220721
  Serious: Yes (Hospitalization, Other)
  Sender: FDA-Public Use
  Company Number: DK-TAKEDA-2022TUS036585

PATIENT
  Age: 44 Year
  Sex: Male

DRUGS (87)
  1. TEDUGLUTIDE [Suspect]
     Active Substance: TEDUGLUTIDE
     Indication: Short-bowel syndrome
     Dosage: UNK
     Route: 042
  2. TEDUGLUTIDE [Suspect]
     Active Substance: TEDUGLUTIDE
     Indication: Short-bowel syndrome
     Dosage: UNK
     Route: 042
  3. TEDUGLUTIDE [Suspect]
     Active Substance: TEDUGLUTIDE
     Indication: Short-bowel syndrome
     Dosage: UNK
     Route: 042
  4. TEDUGLUTIDE [Suspect]
     Active Substance: TEDUGLUTIDE
     Indication: Short-bowel syndrome
     Dosage: UNK
     Route: 042
  5. AMITRIPTYLINE [Concomitant]
     Active Substance: AMITRIPTYLINE
     Indication: Abdominal pain
     Dosage: 10 MILLIGRAM, QD
     Route: 048
     Dates: start: 201610, end: 2018
  6. CITALOPRAM [Concomitant]
     Active Substance: CITALOPRAM HYDROBROMIDE
     Indication: Pain
     Dosage: 30 MILLIGRAM, QD
     Route: 048
     Dates: start: 20181129
  7. CITALOPRAM [Concomitant]
     Active Substance: CITALOPRAM HYDROBROMIDE
     Indication: Depression
  8. ACETAMINOPHEN [Concomitant]
     Active Substance: ACETAMINOPHEN
     Indication: Pain
     Dosage: 1 GRAM
     Route: 048
  9. FENTANYL [Concomitant]
     Active Substance: FENTANYL
     Indication: Pain
     Dosage: 100 MICROGRAM
     Route: 062
  10. PIPERACILLIN AND TAZOBACTAM [Concomitant]
     Active Substance: PIPERACILLIN SODIUM\TAZOBACTAM SODIUM
     Indication: Device related sepsis
     Dosage: 4 GRAM, TID
     Route: 042
     Dates: start: 20161027, end: 20161107
  11. PIPERACILLIN AND TAZOBACTAM [Concomitant]
     Active Substance: PIPERACILLIN SODIUM\TAZOBACTAM SODIUM
     Dosage: 400 MILLIGRAM, TID
     Route: 042
     Dates: start: 20191003, end: 20191011
  12. PIPERACILLIN AND TAZOBACTAM [Concomitant]
     Active Substance: PIPERACILLIN SODIUM\TAZOBACTAM SODIUM
     Dosage: 4000 MILLIGRAM, QID
     Route: 042
     Dates: start: 20191207, end: 20191217
  13. PIPERACILLIN AND TAZOBACTAM [Concomitant]
     Active Substance: PIPERACILLIN SODIUM\TAZOBACTAM SODIUM
     Dosage: 4000 MILLIGRAM, QID
     Route: 042
     Dates: start: 20191005, end: 20191011
  14. PIPERACILLIN AND TAZOBACTAM [Concomitant]
     Active Substance: PIPERACILLIN SODIUM\TAZOBACTAM SODIUM
     Dosage: 4000 MILLIGRAM, QID
     Route: 042
     Dates: start: 20191207, end: 20191217
  15. PIPERACILLIN AND TAZOBACTAM [Concomitant]
     Active Substance: PIPERACILLIN SODIUM\TAZOBACTAM SODIUM
     Dosage: 4000 MILLIGRAM, TID
     Route: 042
     Dates: start: 20211011, end: 20211028
  16. PREDNISOLONE [Concomitant]
     Active Substance: PREDNISOLONE
     Indication: Crohn^s disease
     Dosage: UNK
     Route: 048
     Dates: start: 20170309, end: 20170330
  17. PREDNISOLONE [Concomitant]
     Active Substance: PREDNISOLONE
     Dosage: 10 MILLIGRAM, BID
     Route: 048
     Dates: start: 20170616
  18. MYCOSTATIN [Concomitant]
     Active Substance: NYSTATIN
     Indication: Oral candidiasis
     Dosage: 4 MILLILITER, QID
     Route: 048
     Dates: start: 20180418, end: 20180426
  19. CEFTRIAXONE [Concomitant]
     Active Substance: CEFTRIAXONE
     Indication: Endoscopic retrograde cholangiopancreatography
     Dosage: 2 GRAM
     Route: 042
     Dates: start: 20180619, end: 20180619
  20. WARFARIN SODIUM [Concomitant]
     Active Substance: WARFARIN SODIUM
     Indication: Portal vein thrombosis
     Dosage: UNK, QD
     Route: 048
     Dates: start: 20180615
  21. CEFUROXIME [Concomitant]
     Active Substance: CEFUROXIME
     Indication: Device related sepsis
     Dosage: 1500 MILLIGRAM, TID
     Route: 042
     Dates: start: 20190522, end: 20190525
  22. CEFUROXIME [Concomitant]
     Active Substance: CEFUROXIME
     Dosage: 1500 MILLIGRAM, TID
     Route: 042
     Dates: start: 20200122, end: 20200124
  23. CEFUROXIME [Concomitant]
     Active Substance: CEFUROXIME
     Dosage: 1500 MILLIGRAM, TID
     Route: 042
     Dates: start: 20200320, end: 20200330
  24. CEFUROXIME [Concomitant]
     Active Substance: CEFUROXIME
     Dosage: 1500 MILLIGRAM, TID
     Route: 042
     Dates: start: 20210116, end: 20210119
  25. CEFUROXIME [Concomitant]
     Active Substance: CEFUROXIME
     Dosage: 1500 MILLIGRAM, TID
     Route: 042
     Dates: start: 20210413, end: 20210414
  26. CEFUROXIME [Concomitant]
     Active Substance: CEFUROXIME
     Dosage: 1500 MILLIGRAM, TID
     Route: 042
     Dates: start: 20210414, end: 20210423
  27. CEFUROXIME [Concomitant]
     Active Substance: CEFUROXIME
     Dosage: 1500 MILLIGRAM, TID
     Route: 042
     Dates: start: 20210706, end: 20210708
  28. CEFUROXIME [Concomitant]
     Active Substance: CEFUROXIME
     Dosage: 1500 MILLIGRAM, TID
     Route: 042
     Dates: start: 20210806, end: 20210811
  29. CEFUROXIME [Concomitant]
     Active Substance: CEFUROXIME
     Dosage: 1500 MILLIGRAM, TID
     Route: 042
     Dates: start: 20210819, end: 20210830
  30. CEFUROXIME [Concomitant]
     Active Substance: CEFUROXIME
     Dosage: 1500 MILLIGRAM, TID
     Route: 042
     Dates: start: 20211229, end: 20220101
  31. CEFUROXIME [Concomitant]
     Active Substance: CEFUROXIME
     Dosage: 1500 MILLIGRAM, TID
     Route: 042
     Dates: start: 20220216, end: 20220218
  32. CIPROFLOXACIN [Concomitant]
     Active Substance: CIPROFLOXACIN
     Indication: Device related sepsis
     Dosage: 400 MILLIGRAM, BID
     Route: 042
     Dates: start: 20190522, end: 20190525
  33. CIPROFLOXACIN [Concomitant]
     Active Substance: CIPROFLOXACIN
     Dosage: 400 MILLIGRAM, BID
     Route: 042
     Dates: start: 20191207, end: 20191208
  34. CIPROFLOXACIN [Concomitant]
     Active Substance: CIPROFLOXACIN
     Dosage: 600 MILLIGRAM, BID
     Route: 042
     Dates: start: 20191208, end: 20191217
  35. CIPROFLOXACIN [Concomitant]
     Active Substance: CIPROFLOXACIN
     Dosage: 400 MILLIGRAM, BID
     Route: 042
     Dates: start: 20200122, end: 20200130
  36. CIPROFLOXACIN [Concomitant]
     Active Substance: CIPROFLOXACIN
     Dosage: 400 MILLIGRAM, BID
     Route: 042
     Dates: start: 20200320, end: 20200322
  37. CIPROFLOXACIN [Concomitant]
     Active Substance: CIPROFLOXACIN
     Dosage: 400 MILLIGRAM, BID
     Route: 042
     Dates: start: 20210413, end: 20210414
  38. CIPROFLOXACIN [Concomitant]
     Active Substance: CIPROFLOXACIN
     Dosage: 400 MILLIGRAM, BID
     Route: 042
     Dates: start: 20210706, end: 20210707
  39. CIPROFLOXACIN [Concomitant]
     Active Substance: CIPROFLOXACIN
     Dosage: 400 MILLIGRAM, BID
     Route: 042
     Dates: start: 20210806, end: 20210816
  40. CIPROFLOXACIN [Concomitant]
     Active Substance: CIPROFLOXACIN
     Dosage: 400 MILLIGRAM, BID
     Route: 042
     Dates: start: 20210815, end: 20210830
  41. CIPROFLOXACIN [Concomitant]
     Active Substance: CIPROFLOXACIN
     Dosage: 200 MILLIGRAM, BID
     Route: 042
     Dates: start: 20211229, end: 20220101
  42. CIPROFLOXACIN [Concomitant]
     Active Substance: CIPROFLOXACIN
     Dosage: 400 MILLIGRAM, BID
     Route: 042
     Dates: start: 20220216, end: 20220218
  43. VANCOMYCIN [Concomitant]
     Active Substance: VANCOMYCIN
     Indication: Device related sepsis
     Dosage: 1000 MILLIGRAM, BID
     Route: 042
     Dates: start: 20190522, end: 20190527
  44. VANCOMYCIN [Concomitant]
     Active Substance: VANCOMYCIN
     Indication: Vascular device infection
     Dosage: 1000 MILLIGRAM, BID
     Route: 042
     Dates: start: 20210806, end: 20210816
  45. VANCOMYCIN [Concomitant]
     Active Substance: VANCOMYCIN
     Dosage: 1000 MILLIGRAM, BID
     Route: 042
     Dates: start: 20210818, end: 20210830
  46. VANCOMYCIN [Concomitant]
     Active Substance: VANCOMYCIN
     Dosage: 1000 MILLIGRAM, BID
     Route: 042
     Dates: start: 20211229, end: 20220107
  47. VANCOMYCIN [Concomitant]
     Active Substance: VANCOMYCIN
     Dosage: 1000 MILLIGRAM, BID
     Route: 042
     Dates: start: 20220216, end: 20220226
  48. VANCOMYCIN [Concomitant]
     Active Substance: VANCOMYCIN
     Dosage: 1000 MILLIGRAM, BID
     Route: 042
     Dates: start: 20191207, end: 20191212
  49. VANCOMYCIN [Concomitant]
     Active Substance: VANCOMYCIN
     Dosage: 1000 MILLIGRAM, BID
     Route: 042
     Dates: start: 20200122, end: 20200123
  50. VANCOMYCIN [Concomitant]
     Active Substance: VANCOMYCIN
     Dosage: 1000 MILLIGRAM, BID
     Route: 042
     Dates: start: 20200320, end: 20200323
  51. VANCOMYCIN [Concomitant]
     Active Substance: VANCOMYCIN
     Dosage: 1000 MILLIGRAM, BID
     Route: 042
     Dates: start: 20210413, end: 20210423
  52. VANCOMYCIN [Concomitant]
     Active Substance: VANCOMYCIN
     Dosage: 1000 MILLIGRAM, BID
     Route: 042
     Dates: start: 20210507, end: 20210519
  53. VANCOMYCIN [Concomitant]
     Active Substance: VANCOMYCIN
     Dosage: 1000 MILLIGRAM, BID
     Route: 042
     Dates: start: 20210706, end: 20210716
  54. VANCOMYCIN [Concomitant]
     Active Substance: VANCOMYCIN
     Dosage: 1000 MILLIGRAM, BID
     Route: 042
     Dates: start: 20210806, end: 20210816
  55. VANCOMYCIN [Concomitant]
     Active Substance: VANCOMYCIN
     Dosage: 1000 MILLIGRAM, BID
     Route: 042
     Dates: start: 20210818, end: 20210830
  56. VANCOMYCIN [Concomitant]
     Active Substance: VANCOMYCIN
     Dosage: 1000 MILLIGRAM, BID
     Route: 042
     Dates: start: 20211229, end: 20220107
  57. DICLOXACILLIN SODIUM [Concomitant]
     Active Substance: DICLOXACILLIN SODIUM
     Indication: Device related infection
     Dosage: 100 MILLIGRAM, TID
     Route: 042
     Dates: start: 20190527, end: 20190531
  58. PANTOPRAZOLE [Concomitant]
     Active Substance: PANTOPRAZOLE
     Indication: Gastrointestinal stoma output decreased
     Dosage: 40 MILLIGRAM, BID
     Route: 048
     Dates: start: 2018, end: 20190529
  59. PANTOPRAZOLE [Concomitant]
     Active Substance: PANTOPRAZOLE
     Indication: Reflux gastritis
     Dosage: 40 MILLIGRAM, QD
     Route: 048
     Dates: start: 20190529, end: 20210113
  60. PANTOPRAZOLE [Concomitant]
     Active Substance: PANTOPRAZOLE
     Dosage: 40 MILLIGRAM, BID
     Route: 048
     Dates: start: 20210113
  61. METHADONE [Concomitant]
     Active Substance: METHADONE HYDROCHLORIDE
     Indication: Product used for unknown indication
     Dosage: 15 MILLIGRAM, TID
     Dates: start: 20190117
  62. ERGOCALCIFEROL [Concomitant]
     Active Substance: ERGOCALCIFEROL
     Indication: Short-bowel syndrome
     Dosage: 300000 INTERNATIONAL UNIT
     Route: 042
     Dates: start: 20170202
  63. HYDROXOCOBALAMIN [Concomitant]
     Active Substance: HYDROXOCOBALAMIN
     Indication: Short-bowel syndrome
     Dosage: 1 MILLIGRAM
     Route: 042
     Dates: start: 20180813
  64. MORPHINE [Concomitant]
     Active Substance: MORPHINE
     Indication: Pain
     Dosage: 20 MILLIGRAM
     Route: 048
     Dates: start: 20171129
  65. METRONIDAZOLE [Concomitant]
     Active Substance: METRONIDAZOLE
     Indication: Infection
     Dosage: 400 MILLIGRAM
     Route: 042
     Dates: start: 20191003, end: 20191003
  66. HYDROCORTISONE [Concomitant]
     Active Substance: HYDROCORTISONE
     Indication: Secondary adrenocortical insufficiency
     Dosage: 50 MILLIGRAM, QID
     Route: 042
     Dates: start: 20191006, end: 20191007
  67. HYDROCORTISONE [Concomitant]
     Active Substance: HYDROCORTISONE
     Dosage: 30 MILLIGRAM, TID
     Route: 042
     Dates: start: 20191009, end: 20191009
  68. HYDROCORTISONE [Concomitant]
     Active Substance: HYDROCORTISONE
     Dosage: 40 MILLIGRAM, BID
     Route: 042
     Dates: start: 20191008, end: 20191008
  69. HYDROCORTISONE [Concomitant]
     Active Substance: HYDROCORTISONE
     Dosage: 20 MILLIGRAM, TID
     Route: 042
     Dates: start: 20191010, end: 20191010
  70. HYDROCORTISONE [Concomitant]
     Active Substance: HYDROCORTISONE
     Dosage: 10 MILLIGRAM, TID
     Route: 042
     Dates: start: 20191011, end: 20191011
  71. HYDROCORTISONE [Concomitant]
     Active Substance: HYDROCORTISONE
     Dosage: 20 MILLIGRAM, BID
     Route: 048
     Dates: start: 20200123, end: 20200123
  72. HYDROCORTISONE [Concomitant]
     Active Substance: HYDROCORTISONE
     Dosage: 10 MILLIGRAM, BID
     Route: 048
     Dates: start: 20200124, end: 20200124
  73. ENTYVIO [Concomitant]
     Active Substance: VEDOLIZUMAB
     Indication: Crohn^s disease
     Dosage: 300 MILLIGRAM
     Route: 042
     Dates: start: 20191120
  74. SOLU-CORTEF [Concomitant]
     Active Substance: HYDROCORTISONE SODIUM SUCCINATE
     Indication: Secondary adrenocortical insufficiency
     Dosage: 50 MILLIGRAM
     Route: 042
     Dates: start: 20200122, end: 20200122
  75. SOLU-CORTEF [Concomitant]
     Active Substance: HYDROCORTISONE SODIUM SUCCINATE
     Dosage: 100 MILLIGRAM, BID
     Route: 042
     Dates: start: 20200501, end: 20200502
  76. KONAKION [Concomitant]
     Active Substance: PHYTONADIONE
     Indication: Hepatic enzyme increased
     Dosage: 10 MILLIGRAM
     Route: 042
     Dates: start: 20200122, end: 20200122
  77. ANIDULAFUNGIN [Concomitant]
     Active Substance: ANIDULAFUNGIN
     Indication: Device related infection
     Dosage: 200 MILLIGRAM
     Route: 042
     Dates: start: 20200123, end: 20200123
  78. ANIDULAFUNGIN [Concomitant]
     Active Substance: ANIDULAFUNGIN
     Dosage: 100 MILLIGRAM, QD
     Route: 042
     Dates: start: 20200124, end: 20200205
  79. LINEZOLID [Concomitant]
     Active Substance: LINEZOLID
     Indication: Device related infection
     Dosage: 600 MILLIGRAM, BID
     Route: 042
     Dates: start: 20200123, end: 20200205
  80. AMPICILLIN [Concomitant]
     Active Substance: AMPICILLIN
     Indication: Device related infection
     Dosage: 2000 MILLIGRAM, TID
     Route: 042
     Dates: start: 20200123, end: 20200124
  81. RIFAMPIN [Concomitant]
     Active Substance: RIFAMPIN
     Indication: Device related infection
     Dosage: 600 MILLIGRAM, BID
     Route: 042
     Dates: start: 20200323, end: 20200330
  82. Furix [Concomitant]
     Indication: Hypervolaemia
     Dosage: 40 MILLIGRAM, BID
     Route: 042
     Dates: start: 20210708, end: 20210712
  83. Furix [Concomitant]
     Indication: Oedema
     Dosage: 40 MILLIGRAM, QD
     Route: 042
     Dates: start: 20220218, end: 20220220
  84. ZOPICLONE [Concomitant]
     Active Substance: ZOPICLONE
     Indication: Insomnia
     Dosage: 7.5 MILLIGRAM, QD
     Route: 048
     Dates: start: 20200506
  85. FUROSEMIDE [Concomitant]
     Active Substance: FUROSEMIDE
     Indication: Oedema
     Dosage: 40 MILLIGRAM, BID
     Route: 048
     Dates: start: 20220222
  86. ALBUMIN HUMAN [Concomitant]
     Active Substance: ALBUMIN HUMAN
     Indication: Hypotension
     Dosage: 200 MILLILITER
     Route: 042
     Dates: start: 20211011, end: 20211011
  87. OXAZEPAM [Concomitant]
     Active Substance: OXAZEPAM
     Indication: Anxiety
     Dosage: 15 MILLIGRAM
     Route: 048
     Dates: start: 20210130, end: 20210201

REACTIONS (1)
  - Suicidal ideation [Recovered/Resolved]

NARRATIVE: CASE EVENT DATE: 20220130
